FAERS Safety Report 25770566 (Version 1)
Quarter: 2025Q3

REPORT INFORMATION
  Report Type: Report from Study
  Country: CA (occurrence: CA)
  Receive Date: 20250908
  Receipt Date: 20250908
  Transmission Date: 20251021
  Serious: Yes (Hospitalization, Other)
  Sender: CELLTRION
  Company Number: CA-CELLTRION INC.-2025CA031404

PATIENT

DRUGS (1)
  1. OMALIZUMAB [Suspect]
     Active Substance: OMALIZUMAB
     Indication: Chronic spontaneous urticaria
     Route: 058

REACTIONS (5)
  - Respiratory tract oedema [Recovering/Resolving]
  - Enlarged uvula [Recovering/Resolving]
  - Oedema mouth [Recovering/Resolving]
  - Pharyngeal swelling [Recovering/Resolving]
  - Anaphylactic reaction [Recovering/Resolving]
